FAERS Safety Report 6666817-8 (Version None)
Quarter: 2010Q1

REPORT INFORMATION
  Report Type: 
  Country: None (occurrence: None)
  Receive Date: 20100331
  Receipt Date: 20100319
  Transmission Date: 20100710
  Serious: Yes (Other)
  Sender: FDA-Public Use
  Company Number: 2010US000974

PATIENT
  Age: 58 Year
  Sex: Female

DRUGS (9)
  1. AMEVIVE [Suspect]
     Indication: PSORIASIS
     Dosage: 15 MG, WEEKLY, INTRAMUSCULAR
     Route: 030
     Dates: start: 20090205, end: 20100201
  2. METFORMIN HCL [Concomitant]
  3. CRESTOR [Concomitant]
  4. ASPIRIN [Concomitant]
  5. AVALIDE [Concomitant]
  6. ACTONEL [Concomitant]
  7. ESCITALOPRAM OXALATE [Concomitant]
  8. VENTOLIN [Concomitant]
  9. FLOVENT [Concomitant]

REACTIONS (4)
  - MEMORY IMPAIRMENT [None]
  - SKIN LESION [None]
  - TRANSIENT ISCHAEMIC ATTACK [None]
  - VIRAL INFECTION [None]
